FAERS Safety Report 21006727 (Version 1)
Quarter: 2022Q2

REPORT INFORMATION
  Report Type: Spontaneous
  Country: US (occurrence: US)
  Receive Date: 20220625
  Receipt Date: 20220625
  Transmission Date: 20220721
  Serious: Yes (Hospitalization)
  Sender: FDA-Public Use
  Company Number: US-ROCHE-3054765

PATIENT
  Age: 64 Year
  Sex: Male

DRUGS (3)
  1. ESBRIET [Suspect]
     Active Substance: PIRFENIDONE
     Indication: Pulmonary arterial hypertension
     Route: 048
     Dates: start: 20220303
  2. ESBRIET [Suspect]
     Active Substance: PIRFENIDONE
     Indication: Idiopathic pulmonary fibrosis
     Dosage: 3 TIMES DAILY
     Route: 048
     Dates: start: 202002, end: 202205
  3. TYVASO [Concomitant]
     Active Substance: TREPROSTINIL

REACTIONS (7)
  - Nausea [Unknown]
  - Insomnia [Unknown]
  - Cough [Unknown]
  - Off label use [Unknown]
  - Pneumonia [Unknown]
  - Interstitial lung disease [Unknown]
  - Cellulitis [Unknown]

NARRATIVE: CASE EVENT DATE: 20220610
